FAERS Safety Report 7141196-0 (Version None)
Quarter: 2010Q4

REPORT INFORMATION
  Report Type: 
  Country: None (occurrence: None)
  Receive Date: 20101203
  Receipt Date: 20101203
  Transmission Date: 20110411
  Serious: Yes (Other)
  Sender: FDA-Public Use
  Company Number: None

PATIENT
  Age: 50 Year
  Sex: Female
  Weight: 122.9248 kg

DRUGS (3)
  1. VYVANSE [Suspect]
  2. BENADRYL [Concomitant]
  3. VITAMIN D [Concomitant]

REACTIONS (1)
  - RECTAL HAEMORRHAGE [None]
